FAERS Safety Report 9757855 (Version 2)
Quarter: 2014Q2

REPORT INFORMATION
  Report Type: Spontaneous
  Country: DK (occurrence: DK)
  Receive Date: 20131216
  Receipt Date: 20140617
  Transmission Date: 20141212
  Serious: Yes (Death, Hospitalization, Other)
  Sender: FDA-Public Use
  Company Number: DK-JNJFOC-20131203990

PATIENT
  Age: 80 Year
  Sex: Female

DRUGS (16)
  1. FENTANYL [Suspect]
     Indication: PRODUCT USED FOR UNKNOWN INDICATION
     Route: 048
  2. FENTANYL [Suspect]
     Indication: PAIN MANAGEMENT
     Route: 048
     Dates: start: 20140108, end: 20140211
  3. FENTANYL [Suspect]
     Indication: PAIN MANAGEMENT
     Route: 048
     Dates: start: 20121220, end: 20140108
  4. FENTANYL [Suspect]
     Indication: PAIN MANAGEMENT
     Route: 048
     Dates: start: 20121123, end: 20121219
  5. FENTANYL [Suspect]
     Indication: PAIN MANAGEMENT
     Route: 048
     Dates: start: 20121010, end: 20121123
  6. CALCIUM [Concomitant]
     Indication: PRODUCT USED FOR UNKNOWN INDICATION
     Route: 065
  7. IMACILLIN [Concomitant]
     Indication: PRODUCT USED FOR UNKNOWN INDICATION
     Route: 065
     Dates: start: 201402
  8. IMACILLIN [Concomitant]
     Indication: PRODUCT USED FOR UNKNOWN INDICATION
     Route: 065
     Dates: start: 201305
  9. LAMOTRIGINE [Concomitant]
     Indication: EPILEPSY
     Route: 065
  10. LAMOTRIGINE [Concomitant]
     Indication: EPILEPSY
     Route: 065
     Dates: start: 20130402, end: 20140211
  11. LAMOTRIGINE [Concomitant]
     Indication: PROPHYLAXIS
     Route: 065
     Dates: start: 20130402, end: 20140211
  12. LAMOTRIGINE [Concomitant]
     Indication: PROPHYLAXIS
     Route: 065
  13. LAXATIVES [Concomitant]
     Indication: PRODUCT USED FOR UNKNOWN INDICATION
     Route: 065
  14. METFORMIN [Concomitant]
     Indication: DIABETES MELLITUS
     Route: 065
  15. METOPROLOL SUCCINATE [Concomitant]
     Indication: ARRHYTHMIA
     Route: 065
     Dates: start: 20130711, end: 20140211
  16. PARACETAMOL [Concomitant]
     Indication: PRODUCT USED FOR UNKNOWN INDICATION
     Route: 065

REACTIONS (13)
  - Asthenia [Fatal]
  - Dementia [Unknown]
  - Unresponsive to stimuli [Unknown]
  - Intentional product misuse [Unknown]
  - Apnoea [Unknown]
  - Lethargy [Unknown]
  - Hypotension [Unknown]
  - Heart rate decreased [Unknown]
  - Pneumonia [Unknown]
  - Hypersomnia [Unknown]
  - Fatigue [Unknown]
  - Inappropriate schedule of drug administration [Unknown]
  - Wrong technique in drug usage process [Unknown]
